FAERS Safety Report 15062003 (Version 1)
Quarter: 2018Q2

REPORT INFORMATION
  Report Type: Spontaneous
  Country: US (occurrence: US)
  Receive Date: 20180625
  Receipt Date: 20180625
  Transmission Date: 20180711
  Serious: Yes (Hospitalization)
  Sender: FDA-Public Use
  Company Number: US-MALLINCKRODT-T201802375

PATIENT
  Sex: Female

DRUGS (1)
  1. H.P. ACTHAR [Suspect]
     Active Substance: CORTICOTROPIN
     Indication: RENAL TRANSPLANT
     Dosage: 80 UNITS/TWICE A WEEK
     Route: 065
     Dates: start: 201601

REACTIONS (3)
  - Wrong technique in product usage process [Unknown]
  - Urosepsis [Unknown]
  - Product use in unapproved indication [Unknown]
